FAERS Safety Report 11579590 (Version 1)
Quarter: 2015Q3

REPORT INFORMATION
  Report Type: Spontaneous
  Country: US (occurrence: US)
  Receive Date: 20150916
  Receipt Date: 20150916
  Transmission Date: 20151125
  Serious: No
  Sender: FDA-Public Use
  Company Number: US-ELI_LILLY_AND_COMPANY-US201308001789

PATIENT
  Sex: Female
  Weight: 54.42 kg

DRUGS (1)
  1. HUMALOG [Suspect]
     Active Substance: INSULIN LISPRO
     Route: 058

REACTIONS (6)
  - Blood glucose increased [Unknown]
  - Insomnia [Unknown]
  - Infusion site discolouration [Unknown]
  - Stress [Unknown]
  - Blood glucose decreased [Unknown]
  - Maternal exposure during pregnancy [Unknown]
